FAERS Safety Report 5797343-6 (Version None)
Quarter: 2008Q2

REPORT INFORMATION
  Report Type: 
  Country: None (occurrence: None)
  Receive Date: 20080630
  Receipt Date: 20080620
  Transmission Date: 20081010
  Serious: Yes (Hospitalization)
  Sender: FDA-Public Use
  Company Number: WAES 0806USA07734

PATIENT
  Age: 31 Year
  Sex: Female
  Weight: 46.7205 kg

DRUGS (9)
  1. ZOCOR [Suspect]
     Indication: PULMONARY ARTERIAL HYPERTENSION
     Dosage: 240 MG/PO
     Route: 048
     Dates: start: 20080531, end: 20080606
  2. ASPIRIN [Suspect]
     Indication: PULMONARY ARTERIAL HYPERTENSION
     Dosage: 1539 MG
     Dates: start: 20080531, end: 20080618
  3. ALDACTONE [Concomitant]
  4. COUMADIN [Concomitant]
  5. LASIX [Concomitant]
  6. REVATIO [Concomitant]
  7. VENTAVIS [Concomitant]
  8. DIGOXIN [Concomitant]
  9. DILTIAZEM HYDROCHLORIDE [Concomitant]

REACTIONS (23)
  - ACTIVATED PARTIAL THROMBOPLASTIN TIME PROLONGED [None]
  - ANAEMIA [None]
  - CELLULITIS [None]
  - CHEST PAIN [None]
  - DIZZINESS [None]
  - DRUG ABUSE [None]
  - DRUG SCREEN POSITIVE [None]
  - DYSPNOEA [None]
  - ERYTHEMA [None]
  - FEELING HOT [None]
  - HYPERHIDROSIS [None]
  - HYPONATRAEMIA [None]
  - INCORRECT DOSE ADMINISTERED [None]
  - INTERNATIONAL NORMALISED RATIO INCREASED [None]
  - OEDEMA PERIPHERAL [None]
  - OPIATES POSITIVE [None]
  - PAIN IN EXTREMITY [None]
  - PALPITATIONS [None]
  - PARAESTHESIA [None]
  - PRESYNCOPE [None]
  - PROTHROMBIN TIME PROLONGED [None]
  - VENTRICULAR TACHYCARDIA [None]
  - WHITE BLOOD CELL COUNT DECREASED [None]
